FAERS Safety Report 7982184-1 (Version None)
Quarter: 2011Q4

REPORT INFORMATION
  Report Type: 
  Country: None (occurrence: None)
  Receive Date: 20111214
  Receipt Date: 20111214
  Transmission Date: 20120403
  Serious: Yes (Hospitalization)
  Sender: FDA-Public Use
  Company Number: None

PATIENT
  Age: 61 Year
  Sex: Male
  Weight: 112.1 kg

DRUGS (2)
  1. VANCOMYCIN HYCHLORIDE [Suspect]
     Indication: INFECTION
     Dosage: 1.75 GM BID IV
     Route: 042
     Dates: start: 20110924, end: 20111209
  2. RIFAMPIN [Suspect]
     Indication: INFECTION
     Dosage: 300 MG BID PO
     Route: 048
     Dates: start: 20111021, end: 20111210

REACTIONS (1)
  - RENAL TUBULAR NECROSIS [None]
